FAERS Safety Report 18869193 (Version 2)
Quarter: 2021Q1

REPORT INFORMATION
  Report Type: Spontaneous
  Country: US (occurrence: US)
  Receive Date: 20210210
  Receipt Date: 20210222
  Transmission Date: 20210420
  Serious: Yes (Hospitalization, Other)
  Sender: FDA-Public Use
  Company Number: US-SA-2021SA040150

PATIENT
  Age: 58 Year
  Sex: Female

DRUGS (2)
  1. CABLIVI [Suspect]
     Active Substance: CAPLACIZUMAB-YHDP
     Indication: THROMBOTIC MICROANGIOPATHY
     Route: 058
     Dates: start: 20210117
  2. RITUXIMAB. [Concomitant]
     Active Substance: RITUXIMAB

REACTIONS (5)
  - Epistaxis [Unknown]
  - Injection site discolouration [Unknown]
  - Frontotemporal dementia [Unknown]
  - Suspected COVID-19 [Unknown]
  - Delirium [Unknown]

NARRATIVE: CASE EVENT DATE: 202101
